FAERS Safety Report 8145644 (Version 8)
Quarter: 2013Q1

REPORT INFORMATION
  Report Type: Report from Study
  Country: US (occurrence: US)
  Receive Date: 20110921
  Receipt Date: 20130322
  Transmission Date: 20140127
  Serious: Yes (Hospitalization, Other)
  Sender: FDA-Public Use
  Company Number: PHHO2010US14355

PATIENT
  Age: 35 Year
  Sex: Female
  Weight: 50.6 kg

DRUGS (7)
  1. MYCOPHENOLATE MOFETIL [Suspect]
     Indication: RENAL TRANSPLANT
     Dosage: 1000 MG, BID
     Route: 048
     Dates: start: 20100824, end: 20110604
  2. MYCOPHENOLATE MOFETIL [Suspect]
     Dosage: 750 MG, BID
     Route: 048
     Dates: start: 20110609, end: 20110725
  3. PREDNISONE [Suspect]
     Indication: RENAL TRANSPLANT
     Dosage: 5 MG, QD
     Route: 048
     Dates: start: 20101023
  4. PROGRAF [Suspect]
     Indication: RENAL TRANSPLANT
     Dosage: 2 MG, BID
     Route: 048
     Dates: start: 20101206
  5. BACTRIM [Suspect]
     Indication: PROPHYLAXIS
  6. LOSARTAN [Concomitant]
     Indication: HYPERTENSION
  7. LASIX [Concomitant]
     Indication: OEDEMA

REACTIONS (9)
  - Renal failure [Recovered/Resolved]
  - Neutropenia [Recovered/Resolved]
  - Cytomegalovirus viraemia [Recovered/Resolved]
  - Diarrhoea [Recovered/Resolved]
  - Pyrexia [Recovered/Resolved]
  - Urinary tract infection [Recovered/Resolved]
  - Urosepsis [Recovered/Resolved with Sequelae]
  - Sinusitis [Unknown]
  - Rhinorrhoea [Unknown]
